FAERS Safety Report 15282573 (Version 2)
Quarter: 2018Q3

REPORT INFORMATION
  Report Type: Spontaneous
  Country: DE (occurrence: DE)
  Receive Date: 20180816
  Receipt Date: 20180823
  Transmission Date: 20181010
  Serious: Yes (Hospitalization, Other)
  Sender: FDA-Public Use
  Company Number: DE-TEVA-2018-DE-939631

PATIENT
  Age: 42 Year
  Sex: Female
  Weight: 130.8 kg

DRUGS (16)
  1. IBUPROFEN. [Suspect]
     Active Substance: IBUPROFEN
     Route: 065
  2. ATACAND PLUS [Concomitant]
     Active Substance: CANDESARTAN CILEXETIL\HYDROCHLOROTHIAZIDE
     Indication: BLOOD PRESSURE ABNORMAL
     Route: 065
  3. ACYCLOVIR. [Concomitant]
     Active Substance: ACYCLOVIR
     Indication: ANTIVIRAL PROPHYLAXIS
     Route: 065
  4. FENISTIL [Concomitant]
     Active Substance: DIMETHINDENE
     Route: 065
  5. IBUPROFEN. [Concomitant]
     Active Substance: IBUPROFEN
     Indication: MUSCULOSKELETAL PAIN
     Dosage: 800, SPORADICALLY APPROX. 1X/ WEEK
     Route: 048
  6. MOTILIUM [Concomitant]
     Active Substance: DOMPERIDONE
     Indication: NAUSEA
     Route: 065
  7. LEMTRADA [Suspect]
     Active Substance: ALEMTUZUMAB
     Indication: MULTIPLE SCLEROSIS
     Route: 041
     Dates: start: 201412, end: 201412
  8. METHYLPREDNISOLONE. [Concomitant]
     Active Substance: METHYLPREDNISOLONE
     Dates: start: 2014
  9. LEMTRADA [Suspect]
     Active Substance: ALEMTUZUMAB
     Indication: MULTIPLE SCLEROSIS
     Route: 041
     Dates: start: 201512, end: 201512
  10. RANITIDINE. [Concomitant]
     Active Substance: RANITIDINE
     Route: 065
  11. CORTISONE [Concomitant]
     Active Substance: CORTISONE\HYDROCORTISONE
  12. DEKRISTOL [Concomitant]
     Active Substance: CHOLECALCIFEROL
     Route: 065
  13. DOTAREM [Concomitant]
     Active Substance: GADOTERATE MEGLUMINE
  14. PANTOPRAZOLE [Concomitant]
     Active Substance: PANTOPRAZOLE
     Route: 065
  15. MONO?EMBOLEX [Concomitant]
     Active Substance: CERTOPARIN SODIUM
     Route: 065
  16. TILIDIN [Concomitant]
     Active Substance: NALOXONE HYDROCHLORIDE\TILIDINE HYDROCHLORIDE
     Indication: MUSCULOSKELETAL PAIN
     Dosage: 100, SPORADICALLY UP TO 400 MG/ DAY
     Route: 048

REACTIONS (48)
  - Haematoma [Not Recovered/Not Resolved]
  - Chest discomfort [Unknown]
  - Alanine aminotransferase increased [Unknown]
  - Proteinuria [Unknown]
  - Urinary sediment present [Unknown]
  - Weight increased [Unknown]
  - Muscular weakness [Unknown]
  - Myalgia [Unknown]
  - Activated partial thromboplastin time prolonged [Unknown]
  - Glomerulonephritis chronic [Unknown]
  - Menstruation irregular [Unknown]
  - Creatinine renal clearance decreased [Unknown]
  - Menorrhagia [Unknown]
  - Dry skin [Unknown]
  - Depression [Unknown]
  - Infertility [Unknown]
  - Mood swings [Unknown]
  - Thyroid stimulating immunoglobulin increased [Unknown]
  - Bacterial test [Unknown]
  - Haematocrit decreased [Unknown]
  - Urinary incontinence [Unknown]
  - Fatigue [Unknown]
  - Insomnia [Unknown]
  - Blood urea increased [Unknown]
  - International normalised ratio decreased [Unknown]
  - Anti-thyroid antibody positive [Unknown]
  - General physical health deterioration [Unknown]
  - Blood creatinine increased [Recovered/Resolved]
  - Arthralgia [Unknown]
  - Heart rate irregular [Unknown]
  - Cholelithiasis [Unknown]
  - Blood pressure increased [Unknown]
  - Thyroxine free increased [Unknown]
  - Oxygen saturation decreased [Unknown]
  - Sensory loss [Unknown]
  - Haematuria [Unknown]
  - Hypothyroidism [Not Recovered/Not Resolved]
  - Autoimmune thyroiditis [Unknown]
  - Blood sodium decreased [Unknown]
  - Gamma-glutamyltransferase increased [Unknown]
  - Sinus tachycardia [Unknown]
  - Hyperthyroidism [Unknown]
  - Cough [Unknown]
  - Dyspnoea exertional [Unknown]
  - Goitre [Unknown]
  - Heart rate increased [Unknown]
  - Motor dysfunction [Unknown]
  - Red blood cells urine positive [Unknown]

NARRATIVE: CASE EVENT DATE: 201503
